FAERS Safety Report 4820690-9 (Version None)
Quarter: 2005Q4

REPORT INFORMATION
  Report Type: 
  Country: None (occurrence: None)
  Receive Date: 20051103
  Receipt Date: 20051027
  Transmission Date: 20060501
  Serious: Yes (Hospitalization, Other)
  Sender: FDA-Public Use
  Company Number: HQWYE275827OCT05

PATIENT
  Age: 83 Year
  Sex: Male

DRUGS (2)
  1. CORDARONE [Suspect]
     Indication: ATRIAL FIBRILLATION
     Dosage: 200 MG 3X PER 1 DAY; 600 MG CONTINUOUS INFUSION
     Route: 048
     Dates: start: 20050922, end: 20050926
  2. CORDARONE [Suspect]
     Indication: ATRIAL FIBRILLATION
     Dosage: 200 MG 3X PER 1 DAY; 600 MG CONTINUOUS INFUSION
     Route: 048
     Dates: start: 20050926, end: 20050927

REACTIONS (4)
  - BALANCE DISORDER [None]
  - DYSGRAPHIA [None]
  - HALLUCINATION [None]
  - PSYCHOTIC DISORDER [None]
